FAERS Safety Report 12053074 (Version 1)
Quarter: 2016Q1

REPORT INFORMATION
  Report Type: Spontaneous
  Country: TR (occurrence: TR)
  Receive Date: 20160209
  Receipt Date: 20160209
  Transmission Date: 20160526
  Serious: Yes (Death, Life-Threatening, Hospitalization)
  Sender: FDA-Public Use
  Company Number: TR-AUROBINDO-AUR-APL-2016-01041

PATIENT
  Age: 32 Year
  Sex: Female

DRUGS (3)
  1. TOPIRAMATE. [Suspect]
     Active Substance: TOPIRAMATE
     Indication: EPILEPSY
     Route: 065
  2. LAMOTRIGINE. [Suspect]
     Active Substance: LAMOTRIGINE
     Indication: EPILEPSY
     Route: 065
  3. CLONAZEPAM. [Suspect]
     Active Substance: CLONAZEPAM
     Indication: EPILEPSY
     Route: 065

REACTIONS (20)
  - Respiratory failure [Not Recovered/Not Resolved]
  - Hepatic enzyme increased [Not Recovered/Not Resolved]
  - Pericardial effusion [Not Recovered/Not Resolved]
  - Pyrexia [Not Recovered/Not Resolved]
  - Dyspnoea [Not Recovered/Not Resolved]
  - Pleural effusion [Not Recovered/Not Resolved]
  - Muscular weakness [Not Recovered/Not Resolved]
  - Folate deficiency [Not Recovered/Not Resolved]
  - Cough [Not Recovered/Not Resolved]
  - Face oedema [Not Recovered/Not Resolved]
  - Pallor [Not Recovered/Not Resolved]
  - Generalised oedema [Not Recovered/Not Resolved]
  - Drug reaction with eosinophilia and systemic symptoms [Fatal]
  - Multiple organ dysfunction syndrome [Fatal]
  - Cardiac failure [Not Recovered/Not Resolved]
  - Lymphadenopathy [Not Recovered/Not Resolved]
  - Hepatic failure [Not Recovered/Not Resolved]
  - Renal failure [Not Recovered/Not Resolved]
  - Splenomegaly [Not Recovered/Not Resolved]
  - Normochromic normocytic anaemia [Not Recovered/Not Resolved]
